FAERS Safety Report 10373959 (Version 3)
Quarter: 2014Q4

REPORT INFORMATION
  Report Type: Spontaneous
  Country: US (occurrence: US)
  Receive Date: 20140809
  Receipt Date: 20141107
  Transmission Date: 20150528
  Serious: Yes (Hospitalization)
  Sender: FDA-Public Use
  Company Number: US-SA-CERZ-1000548

PATIENT
  Age: 74 Year
  Sex: Female
  Weight: 83 kg

DRUGS (3)
  1. CEREZYME [Suspect]
     Active Substance: IMIGLUCERASE
     Indication: GAUCHER^S DISEASE
     Dosage: 24 U/KG, Q2W DOSE:24 UNIT(S)/KILOGRAM BODYWEIGHT
     Route: 042
     Dates: start: 2003
  2. CEREZYME [Suspect]
     Active Substance: IMIGLUCERASE
     Indication: GAUCHER^S DISEASE
     Dosage: 6400 U, Q2W DOSE:6400 UNIT(S)
     Route: 042
  3. CEREZYME [Suspect]
     Active Substance: IMIGLUCERASE
     Indication: GAUCHER^S DISEASE
     Dosage: 60 U/KG, Q2W DOSE:60 UNIT(S)/KILOGRAM BODYWEIGHT
     Route: 042

REACTIONS (4)
  - Colon cancer [Unknown]
  - Haemorrhage [Unknown]
  - Post procedural complication [Unknown]
  - Lymphoma [Unknown]

NARRATIVE: CASE EVENT DATE: 2008
